FAERS Safety Report 15126974 (Version 1)
Quarter: 2018Q3

REPORT INFORMATION
  Report Type: Spontaneous
  Country: US (occurrence: US)
  Receive Date: 20180710
  Receipt Date: 20180710
  Transmission Date: 20181010
  Serious: Yes (Other)
  Sender: FDA-Public Use
  Company Number: US-SA-2017SA255112

PATIENT
  Age: 57 Year
  Sex: Female
  Weight: 70.3 kg

DRUGS (4)
  1. TAXOTERE [Suspect]
     Active Substance: DOCETAXEL
     Indication: BREAST CANCER
     Dosage: 157 MG,Q3W
     Route: 051
     Dates: start: 19991116, end: 19991116
  2. OTHER THERAPEUTIC PRODUCTS [Concomitant]
     Active Substance: UNSPECIFIED INGREDIENT
  3. DOXORUBICIN [Concomitant]
     Active Substance: DOXORUBICIN
  4. TAXOTERE [Suspect]
     Active Substance: DOCETAXEL
     Dosage: 157 MG,Q3W
     Route: 051
     Dates: start: 20000210, end: 20000210

REACTIONS (1)
  - Alopecia [Recovering/Resolving]

NARRATIVE: CASE EVENT DATE: 199912
